FAERS Safety Report 7800243-0 (Version None)
Quarter: 2011Q4

REPORT INFORMATION
  Report Type: 
  Country: None (occurrence: None)
  Receive Date: 20111006
  Receipt Date: 20110906
  Transmission Date: 20120403
  Serious: Yes (Other)
  Sender: FDA-Public Use
  Company Number: US-GLAXOSMITHKLINE-A0943459A

PATIENT
  Age: 77 Year
  Sex: Female

DRUGS (1)
  1. TYKERB [Suspect]
     Indication: BREAST CANCER METASTATIC
     Dosage: 750TAB PER DAY
     Route: 048
     Dates: start: 20110903, end: 20110922

REACTIONS (3)
  - ABDOMINAL PAIN UPPER [None]
  - HAEMORRHAGE [None]
  - DIARRHOEA [None]
